FAERS Safety Report 8216839-0 (Version None)
Quarter: 2012Q1

REPORT INFORMATION
  Report Type: 
  Country: None (occurrence: None)
  Receive Date: 20120316
  Receipt Date: 20120307
  Transmission Date: 20120608
  Serious: Yes (Other)
  Sender: FDA-Public Use
  Company Number: BR-ASTRAZENECA-2011SE66858

PATIENT
  Age: 79 Year
  Sex: Male
  Weight: 78 kg

DRUGS (7)
  1. ATACAND HCT [Suspect]
     Indication: HYPERTENSION
     Dosage: 16/5 MG OD
     Route: 048
     Dates: start: 20110101, end: 20120201
  2. CARBAMAZEPINE [Concomitant]
     Indication: INSOMNIA
     Route: 048
  3. ATACAND [Suspect]
     Route: 048
     Dates: start: 20120101
  4. ATACAND [Suspect]
     Indication: HYPERTENSION
     Route: 048
     Dates: start: 20100101, end: 20110101
  5. SIMVASTATIN [Concomitant]
     Indication: BLOOD CHOLESTEROL INCREASED
     Route: 048
  6. METRI [Concomitant]
     Indication: BLOOD CHOLESTEROL INCREASED
     Route: 048
  7. INDAPAMIDE [Concomitant]
     Route: 048
     Dates: end: 20110101

REACTIONS (9)
  - INTRACARDIAC THROMBUS [None]
  - HYPERTENSION [None]
  - CORNEAL THICKENING [None]
  - OEDEMA PERIPHERAL [None]
  - ARRHYTHMIA [None]
  - DRUG INEFFECTIVE [None]
  - WEIGHT INCREASED [None]
  - INTRAOCULAR PRESSURE INCREASED [None]
  - BLOOD POTASSIUM DECREASED [None]
